FAERS Safety Report 14275942 (Version 2)
Quarter: 2017Q4

REPORT INFORMATION
  Report Type: Spontaneous
  Country: DE (occurrence: DE)
  Receive Date: 20171211
  Receipt Date: 20171222
  Transmission Date: 20180321
  Serious: Yes (Other)
  Sender: FDA-Public Use
  Company Number: DE-FERRINGPH-2017FE05943

PATIENT

DRUGS (4)
  1. ZOMACTON [Suspect]
     Active Substance: SOMATROPIN
     Indication: GROWTH HORMONE DEFICIENCY
     Dosage: 0.023 MG/KG, DAILY
     Route: 058
     Dates: start: 20171127
  2. ZOMACTON [Suspect]
     Active Substance: SOMATROPIN
     Dosage: 0.9 MG, DAILY
     Route: 058
     Dates: start: 201309
  3. ZOMACTON [Suspect]
     Active Substance: SOMATROPIN
     Dosage: 0.030 MG/KG, DAILY
     Route: 058
     Dates: start: 20170523, end: 20171127
  4. ZOMACTON [Suspect]
     Active Substance: SOMATROPIN
     Dosage: 0.8 MG, UNK
     Route: 058
     Dates: end: 20170523

REACTIONS (1)
  - Glaucoma [Not Recovered/Not Resolved]

NARRATIVE: CASE EVENT DATE: 20171009
